FAERS Safety Report 5684666-4 (Version None)
Quarter: 2008Q1

REPORT INFORMATION
  Report Type: 
  Country: None (occurrence: None)
  Receive Date: 20080328
  Receipt Date: 20070522
  Transmission Date: 20080703
  Serious: No
  Sender: FDA-Public Use
  Company Number: US-BRISTOL-MYERS SQUIBB COMPANY-13788898

PATIENT
  Age: 62 Year
  Sex: Male
  Weight: 75 kg

DRUGS (3)
  1. ERBITUX [Suspect]
     Indication: THROAT CANCER
     Route: 042
     Dates: start: 20070514, end: 20070514
  2. ERBITUX [Suspect]
     Indication: LARYNGEAL CANCER
     Route: 042
     Dates: start: 20070514, end: 20070514
  3. BENADRYL [Concomitant]
     Indication: PREMEDICATION

REACTIONS (1)
  - RASH [None]
